FAERS Safety Report 9536652 (Version 1)
Quarter: 2013Q3

REPORT INFORMATION
  Report Type: Spontaneous
  Country: IN (occurrence: IN)
  Receive Date: 20130919
  Receipt Date: 20130919
  Transmission Date: 20140515
  Serious: Yes (Death)
  Sender: FDA-Public Use
  Company Number: IN-ASTELLAS-2013JP009646

PATIENT
  Sex: Male

DRUGS (1)
  1. MICAFUNGIN [Suspect]
     Indication: SYSTEMIC CANDIDA
     Route: 065

REACTIONS (2)
  - Off label use [Unknown]
  - Death [Fatal]
